FAERS Safety Report 11744564 (Version 1)
Quarter: 2015Q4

REPORT INFORMATION
  Report Type: Report from Study
  Country: BR (occurrence: BR)
  Receive Date: 20151116
  Receipt Date: 20151116
  Transmission Date: 20160304
  Serious: Yes (Other)
  Sender: FDA-Public Use
  Company Number: BR-BAXALTA-2015BLT002683

PATIENT

DRUGS (1)
  1. FEIBA [Suspect]
     Active Substance: ANTI-INHIBITOR COAGULANT COMPLEX
     Indication: HAEMORRHAGE PROPHYLAXIS
     Dosage: 4500 IU, 3X A WEEK
     Route: 065
     Dates: start: 2011

REACTIONS (5)
  - Drug ineffective [Unknown]
  - Haemorrhage [Unknown]
  - Pain in extremity [Unknown]
  - Haematoma [Unknown]
  - Pain [Unknown]
